FAERS Safety Report 16608923 (Version 1)
Quarter: 2019Q3

REPORT INFORMATION
  Report Type: Report from Study
  Country: AR (occurrence: AR)
  Receive Date: 20190722
  Receipt Date: 20190722
  Transmission Date: 20191004
  Serious: Yes (Other)
  Sender: FDA-Public Use
  Company Number: AR-UCBSA-050717

PATIENT
  Age: 38 Year
  Sex: Male
  Weight: 93 kg

DRUGS (1)
  1. CERTOLIZUMAB PEGOL VS PLACEBO [Suspect]
     Active Substance: CERTOLIZUMAB PEGOL
     Indication: PSORIATIC ARTHROPATHY
     Route: 058
     Dates: end: 20120116

REACTIONS (1)
  - HIV infection [Recovering/Resolving]

NARRATIVE: CASE EVENT DATE: 20120130
